FAERS Safety Report 14593094 (Version 1)
Quarter: 2018Q1

REPORT INFORMATION
  Report Type: Report from Study
  Country: NZ (occurrence: NZ)
  Receive Date: 20180302
  Receipt Date: 20180302
  Transmission Date: 20180509
  Serious: Yes (Other)
  Sender: FDA-Public Use
  Company Number: NZ-ASTRAZENECA-2018SE23752

PATIENT
  Age: 62 Year
  Sex: Female

DRUGS (16)
  1. LEVOTHYROXINE. [Concomitant]
     Active Substance: LEVOTHYROXINE
     Dates: start: 20171004
  2. OTHER CILAZIPRIL [Concomitant]
     Dates: start: 20171212
  3. OMEPRAZOLE. [Concomitant]
     Active Substance: OMEPRAZOLE
     Dates: start: 20160202
  4. PARACETAMOL [Concomitant]
     Active Substance: ACETAMINOPHEN
     Dates: start: 20170507
  5. CODEINE [Concomitant]
     Active Substance: CODEINE
     Dates: start: 20170507
  6. FILGRASTIM [Concomitant]
     Active Substance: FILGRASTIM
     Dates: start: 20180218
  7. TIOTROPIUM [Concomitant]
     Active Substance: TIOTROPIUM
     Dates: start: 20140509
  8. NYSTATIN. [Concomitant]
     Active Substance: NYSTATIN
     Dates: start: 20171214
  9. DOCUSATE WITH SENNA [Concomitant]
     Dates: start: 20171207
  10. CYCLIZINE [Concomitant]
     Active Substance: CYCLIZINE
     Dates: start: 20171208
  11. VITAMIN D [Concomitant]
     Active Substance: CHOLECALCIFEROL
     Dates: start: 20130404
  12. PREDNISONE. [Concomitant]
     Active Substance: PREDNISONE
     Dates: start: 20180219
  13. ATORVASTATIN [Concomitant]
     Active Substance: ATORVASTATIN
     Dates: start: 20130404
  14. MEDI4736 [Suspect]
     Active Substance: DURVALUMAB
     Indication: NON-SMALL CELL LUNG CANCER
     Route: 042
     Dates: start: 20170712
  15. CLOPIDOGREL [Concomitant]
     Active Substance: CLOPIDOGREL BISULFATE
     Dates: start: 20180101
  16. SALBUTAMOL [Concomitant]
     Active Substance: ALBUTEROL
     Dates: start: 20160526

REACTIONS (1)
  - Neutrophil count decreased [Recovered/Resolved]

NARRATIVE: CASE EVENT DATE: 20180215
